FAERS Safety Report 4761388-5 (Version None)
Quarter: 2005Q3

REPORT INFORMATION
  Report Type: 
  Country: None (occurrence: None)
  Receive Date: 20050901
  Receipt Date: 20050823
  Transmission Date: 20060218
  Serious: Yes (Other)
  Sender: FDA-Public Use
  Company Number: 2005US001173

PATIENT

DRUGS (1)
  1. PROTOPIC [Suspect]
     Dosage: TOPICAL
     Route: 061

REACTIONS (1)
  - LYMPHOMA [None]
